FAERS Safety Report 5831414-0 (Version None)
Quarter: 2008Q3

REPORT INFORMATION
  Report Type: 
  Country: None (occurrence: None)
  Receive Date: 20080801
  Receipt Date: 20080723
  Transmission Date: 20090109
  Serious: Yes (Hospitalization)
  Sender: FDA-Public Use
  Company Number: US-PFIZER INC-2008040688

PATIENT
  Sex: Female
  Weight: 73 kg

DRUGS (8)
  1. XANAX [Suspect]
     Indication: MULTIPLE SCLEROSIS
     Route: 048
  2. ALPRAZOLAM [Suspect]
     Indication: MULTIPLE SCLEROSIS
  3. CYMBALTA [Concomitant]
     Indication: DEPRESSION
  4. PROVIGIL [Concomitant]
  5. DETROL LA [Concomitant]
     Indication: BLADDER DISORDER
  6. PRILOSEC [Concomitant]
  7. REMERON [Concomitant]
  8. COPAXONE [Concomitant]

REACTIONS (4)
  - CYSTITIS [None]
  - DRUG INEFFECTIVE [None]
  - MALAISE [None]
  - MULTIPLE SCLEROSIS [None]
